FAERS Safety Report 14210208 (Version 4)
Quarter: 2018Q1

REPORT INFORMATION
  Report Type: Spontaneous
  Country: GB (occurrence: GB)
  Receive Date: 20171121
  Receipt Date: 20180222
  Transmission Date: 20180508
  Serious: Yes (Death, Other)
  Sender: FDA-Public Use
  Company Number: GB-PFIZER INC-2017500670

PATIENT
  Age: 29 Year
  Sex: Female

DRUGS (3)
  1. DIAZEPAM. [Suspect]
     Active Substance: DIAZEPAM
     Dosage: UNK
  2. SERTRALINE HCL [Suspect]
     Active Substance: SERTRALINE HYDROCHLORIDE
     Dosage: UNK
  3. PREGABALIN. [Suspect]
     Active Substance: PREGABALIN
     Dosage: UNK

REACTIONS (7)
  - Borderline personality disorder [Fatal]
  - Mental impairment [Fatal]
  - Hallucination, auditory [Fatal]
  - Suicidal behaviour [Fatal]
  - Sudden death [Fatal]
  - Somnolence [Fatal]
  - Hypersomnia [Fatal]

NARRATIVE: CASE EVENT DATE: 20170917
